APPROVED DRUG PRODUCT: GLIMEPIRIDE
Active Ingredient: GLIMEPIRIDE
Strength: 2MG
Dosage Form/Route: TABLET;ORAL
Application: A077624 | Product #002
Applicant: QUAGEN PHARMACEUTICALS LLC
Approved: Nov 28, 2005 | RLD: No | RS: No | Type: DISCN